FAERS Safety Report 7542306 (Version 15)
Quarter: 2014Q2

REPORT INFORMATION
  Report Type: Spontaneous
  Country: US (occurrence: US)
  Receive Date: 20100816
  Receipt Date: 20140528
  Transmission Date: 20141212
  Serious: Yes (Hospitalization, Other)
  Sender: FDA-Public Use
  Company Number: PHEH2010US03512

PATIENT
  Sex: Female

DRUGS (14)
  1. AREDIA [Suspect]
     Dosage: 90 MG, QMO
     Route: 042
  2. ZOMETA [Suspect]
     Indication: BREAST CANCER METASTATIC
     Dosage: 4 MG, QMO
     Route: 042
     Dates: start: 200205
  3. ZOMETA [Suspect]
     Indication: METASTASES TO BONE
  4. ZOMETA [Suspect]
     Indication: NEOPLASM MALIGNANT
  5. HERCEPTIN [Concomitant]
  6. MORPHINE [Concomitant]
  7. PREVACID [Concomitant]
  8. ATIVAN [Concomitant]
  9. ZOLOFT [Concomitant]
  10. AMBIEN [Concomitant]
  11. DECADRON [Concomitant]
  12. CELEBREX [Concomitant]
  13. ZOFRAN [Concomitant]
  14. CIPROFLOXACIN [Concomitant]

REACTIONS (97)
  - Pneumonia [Unknown]
  - Bronchospasm [Unknown]
  - Fall [Unknown]
  - Contusion [Unknown]
  - Ligament sprain [Unknown]
  - Wound [Unknown]
  - Osteonecrosis of jaw [Unknown]
  - Pain [Unknown]
  - Infection [Unknown]
  - Deformity [Unknown]
  - Osteomyelitis [Unknown]
  - Impaired healing [Unknown]
  - Facial pain [Unknown]
  - Insomnia [Unknown]
  - Pain in jaw [Unknown]
  - Oral mucosal blistering [Unknown]
  - Gingival disorder [Unknown]
  - Gingival ulceration [Unknown]
  - Exposed bone in jaw [Unknown]
  - Diarrhoea [Unknown]
  - Overdose [Unknown]
  - Metastases to bone [Unknown]
  - Metastases to lung [Unknown]
  - Sweat gland infection [Unknown]
  - Cerebral small vessel ischaemic disease [Unknown]
  - Lymphadenopathy [Unknown]
  - Chronic obstructive pulmonary disease [Unknown]
  - Cardiomegaly [Unknown]
  - Seborrhoeic keratosis [Unknown]
  - Neuropathy peripheral [Unknown]
  - Hyperplasia [Unknown]
  - Intervertebral disc protrusion [Unknown]
  - Intervertebral disc disorder [Unknown]
  - Spinal osteoarthritis [Unknown]
  - Spinal cord compression [Unknown]
  - Back pain [Unknown]
  - Confusional state [Unknown]
  - Tinnitus [Unknown]
  - Hypoaesthesia [Unknown]
  - Paraesthesia [Unknown]
  - Headache [Unknown]
  - Abdominal pain [Unknown]
  - Oropharyngeal pain [Unknown]
  - Upper respiratory tract infection [Unknown]
  - Dizziness [Unknown]
  - Joint stiffness [Unknown]
  - Bursitis [Unknown]
  - Skin burning sensation [Unknown]
  - Arthralgia [Unknown]
  - Ingrowing nail [Unknown]
  - Arthritis [Unknown]
  - Gastritis [Unknown]
  - Haematoma [Unknown]
  - Oral pain [Unknown]
  - Chest wall cyst [Unknown]
  - Muscle spasms [Unknown]
  - Depression [Unknown]
  - Anxiety [Unknown]
  - Urinary tract infection [Unknown]
  - Sinus tachycardia [Unknown]
  - Immunosuppression [Unknown]
  - Chest pain [Unknown]
  - Neck pain [Unknown]
  - Intervertebral disc degeneration [Unknown]
  - Dehydration [Unknown]
  - Claustrophobia [Unknown]
  - Renal cyst [Unknown]
  - Torticollis [Unknown]
  - Neck mass [Unknown]
  - Osteosclerosis [Unknown]
  - Mitral valve incompetence [Unknown]
  - Tricuspid valve incompetence [Unknown]
  - Pulmonary hypertension [Unknown]
  - Gastrooesophageal reflux disease [Unknown]
  - Dyspnoea [Unknown]
  - Cerumen impaction [Unknown]
  - Hearing impaired [Unknown]
  - Restless legs syndrome [Unknown]
  - Mucosal inflammation [Unknown]
  - Fear [Unknown]
  - Emotional distress [Unknown]
  - Anger [Unknown]
  - Neuralgia [Unknown]
  - Musculoskeletal pain [Unknown]
  - Sexually transmitted disease [Unknown]
  - Panic attack [Unknown]
  - Burning sensation [Unknown]
  - Weight decreased [Unknown]
  - Dysuria [Unknown]
  - Dyspepsia [Unknown]
  - Pollakiuria [Unknown]
  - Micturition urgency [Unknown]
  - Abdominal tenderness [Unknown]
  - Axonal neuropathy [Unknown]
  - Epicondylitis [Unknown]
  - Local swelling [Unknown]
  - Erythema [Unknown]
